FAERS Safety Report 9844473 (Version 1)
Quarter: 2014Q1

REPORT INFORMATION
  Report Type: Spontaneous
  Country: CA (occurrence: CA)
  Receive Date: 20140127
  Receipt Date: 20140127
  Transmission Date: 20141002
  Serious: Yes (Disabling)
  Sender: FDA-Public Use
  Company Number: CA-AMGEN-CANSP2014004439

PATIENT
  Age: 73 Year
  Sex: Female
  Weight: 61.22 kg

DRUGS (8)
  1. PROLIA [Suspect]
     Indication: PRODUCT USED FOR UNKNOWN INDICATION
     Dosage: 1 DF, UNK
     Route: 058
  2. ACTONEL [Suspect]
     Indication: PRODUCT USED FOR UNKNOWN INDICATION
     Dosage: 35 MG, QWK
     Route: 048
  3. ADVAIR [Concomitant]
     Dosage: 250 UNK, UNK
     Route: 065
  4. APO OXAZEPAM [Concomitant]
     Route: 065
  5. CALCIUM [Concomitant]
     Route: 065
  6. MULTIVITAMINS [Concomitant]
     Route: 065
  7. VITALUX PLUS LUTEIN OMEGA 3 [Concomitant]
     Route: 065
  8. VITAMIN D                          /00107901/ [Concomitant]
     Route: 065

REACTIONS (6)
  - Arthralgia [Unknown]
  - Blood urine present [Unknown]
  - Bone pain [Unknown]
  - Foot deformity [Unknown]
  - Gastrointestinal sounds abnormal [Unknown]
  - Urinary tract infection [Unknown]
